FAERS Safety Report 5562428-6 (Version None)
Quarter: 2007Q4

REPORT INFORMATION
  Report Type: 
  Country: None (occurrence: None)
  Receive Date: 20071215
  Receipt Date: 20070507
  Transmission Date: 20080405
  Serious: No
  Sender: FDA-Public Use
  Company Number: US-AMGEN-US222404

PATIENT
  Sex: Female

DRUGS (10)
  1. ARANESP [Suspect]
     Indication: RENAL FAILURE CHRONIC
     Route: 058
  2. INSULIN [Concomitant]
     Route: 065
     Dates: start: 20060523
  3. STARLIX [Concomitant]
     Route: 065
     Dates: start: 20060523
  4. AMIODARONE HCL [Concomitant]
     Route: 065
     Dates: start: 20070410
  5. SYNTHROID [Concomitant]
     Route: 065
     Dates: start: 20050929
  6. LIPITOR [Concomitant]
     Route: 065
     Dates: start: 20070410
  7. NORVASC [Concomitant]
     Route: 065
     Dates: start: 20070410
  8. LASIX [Concomitant]
     Route: 065
     Dates: start: 20050929
  9. ASPIRIN [Concomitant]
     Route: 065
     Dates: start: 20070410
  10. TYLENOL (CAPLET) [Concomitant]
     Route: 065

REACTIONS (3)
  - HYPERHIDROSIS [None]
  - HYPOGLYCAEMIA [None]
  - TREMOR [None]
